FAERS Safety Report 6743605-5 (Version None)
Quarter: 2010Q2

REPORT INFORMATION
  Report Type: 
  Country: None (occurrence: None)
  Receive Date: 20100527
  Receipt Date: 20100513
  Transmission Date: 20101027
  Serious: Yes (Death)
  Sender: FDA-Public Use
  Company Number: SK-GENENTECH-301315

PATIENT
  Sex: Male

DRUGS (2)
  1. RANIBIZUMAB [Suspect]
     Indication: MACULAR DEGENERATION
     Dosage: UNK
     Route: 031
     Dates: start: 20090806
  2. RANIBIZUMAB [Suspect]
     Dosage: UNK
     Route: 031
     Dates: start: 20100308

REACTIONS (4)
  - CEREBROVASCULAR ACCIDENT [None]
  - DISSEMINATED INTRAVASCULAR COAGULATION [None]
  - MYOCARDIAL ISCHAEMIA [None]
  - PULMONARY EMBOLISM [None]
